FAERS Safety Report 9158108 (Version 2)
Quarter: 2013Q1

REPORT INFORMATION
  Report Type: Spontaneous
  Country: US (occurrence: None)
  Receive Date: 20130213
  Receipt Date: 20130311
  Transmission Date: 20140127
  Serious: Yes (Other)
  Sender: FDA-Public Use
  Company Number: JPI-P-029606

PATIENT
  Age: 47 Year
  Sex: Female
  Weight: 81.65 kg

DRUGS (8)
  1. XYREM (500 MILLIGRAM/MILLILITERS, SOLUTION) (SODIUM OXYBATE) [Suspect]
     Indication: NARCOLEPSY
     Dosage: 6 GM (3 GM, 2 IN 1 D), ORAL
     Route: 048
     Dates: start: 20130124, end: 20130128
  2. XYREM (500 MILLIGRAM/MILLILITERS, SOLUTION) (SODIUM OXYBATE) [Suspect]
     Indication: SOMNOLENCE
     Dosage: 6 GM (3 GM, 2 IN 1 D), ORAL
     Route: 048
     Dates: start: 20130124, end: 20130128
  3. LEVOTHYROXINE SODIUM [Concomitant]
  4. THYROID HORMONES [Concomitant]
  5. NICARDIPINE [Concomitant]
  6. PROPRANOLOL [Concomitant]
  7. AMILORIDE HYDROCHLORIDE [Concomitant]
  8. METFORMIN [Concomitant]

REACTIONS (5)
  - Heart rate increased [None]
  - Blood pressure increased [None]
  - Headache [None]
  - Headache [None]
  - Cerebrovascular accident [None]
